FAERS Safety Report 7415095-0 (Version None)
Quarter: 2011Q2

REPORT INFORMATION
  Report Type: 
  Country: None (occurrence: None)
  Receive Date: 20110414
  Receipt Date: 20110412
  Transmission Date: 20111010
  Serious: Yes (Disabling)
  Sender: FDA-Public Use
  Company Number: PA-ROCHE-770897

PATIENT
  Sex: Male

DRUGS (2)
  1. CAPECITABINE [Suspect]
     Indication: GASTRIC CANCER
     Route: 048
     Dates: start: 20100728, end: 20101201
  2. CAPECITABINE [Suspect]
     Route: 048
     Dates: start: 20110201

REACTIONS (2)
  - PIGMENTATION DISORDER [None]
  - HYPOAESTHESIA [None]
